FAERS Safety Report 15712818 (Version 1)
Quarter: 2018Q4

REPORT INFORMATION
  Report Type: Spontaneous
  Country: US (occurrence: US)
  Receive Date: 20181211
  Receipt Date: 20181211
  Transmission Date: 20190205
  Serious: Yes (Hospitalization, Disabling)
  Sender: FDA-Public Use
  Company Number: None

PATIENT
  Age: 39 Year
  Sex: Female
  Weight: 63 kg

DRUGS (2)
  1. AVELOX [Suspect]
     Active Substance: MOXIFLOXACIN HYDROCHLORIDE
     Indication: UPPER RESPIRATORY TRACT INFECTION
     Dosage: ?          QUANTITY:1 TABLET(S);?
     Route: 048
  2. AVELOX [Suspect]
     Active Substance: MOXIFLOXACIN HYDROCHLORIDE
     Indication: NASOPHARYNGITIS
     Dosage: ?          QUANTITY:1 TABLET(S);?
     Route: 048

REACTIONS (21)
  - Feeling abnormal [None]
  - Drug hypersensitivity [None]
  - Asthenia [None]
  - Multiple sclerosis [None]
  - Chronic fatigue syndrome [None]
  - Tendon disorder [None]
  - Toxicity to various agents [None]
  - Cerebral disorder [None]
  - Gait inability [None]
  - Pneumonia [None]
  - Paraesthesia [None]
  - Visual impairment [None]
  - Nervous system disorder [None]
  - Neuropathy peripheral [None]
  - Mitochondrial toxicity [None]
  - Rash [None]
  - Diarrhoea [None]
  - Muscular weakness [None]
  - Limb discomfort [None]
  - Bedridden [None]
  - Disability [None]

NARRATIVE: CASE EVENT DATE: 20070423
